FAERS Safety Report 12597243 (Version 1)
Quarter: 2016Q3

REPORT INFORMATION
  Report Type: Report from Study
  Country: BR (occurrence: BR)
  Receive Date: 20160726
  Receipt Date: 20160726
  Transmission Date: 20161109
  Serious: Yes (Other)
  Sender: FDA-Public Use
  Company Number: BR-ABBVIE-16K-020-1681429-00

PATIENT
  Age: 40 Year
  Sex: Female
  Weight: 78 kg

DRUGS (7)
  1. SULFASALAZINE. [Concomitant]
     Active Substance: SULFASALAZINE
     Indication: SPONDYLITIS
     Route: 048
     Dates: start: 2016
  2. MESACOL [Concomitant]
     Active Substance: MESALAMINE
     Indication: DIARRHOEA
     Route: 054
     Dates: start: 201601, end: 201602
  3. HUMIRA [Suspect]
     Active Substance: ADALIMUMAB
     Indication: ANKYLOSING SPONDYLITIS
     Route: 058
     Dates: start: 20120801, end: 201603
  4. VIMOVO [Concomitant]
     Active Substance: ESOMEPRAZOLE MAGNESIUM\NAPROXEN
     Indication: BACK PAIN
     Route: 048
     Dates: start: 20160712
  5. MESACOL [Concomitant]
     Active Substance: MESALAMINE
     Indication: HAEMORRHAGE
  6. ENALAPRIL [Concomitant]
     Active Substance: ENALAPRIL
     Indication: BLOOD PRESSURE ABNORMAL
     Route: 048
     Dates: start: 2008
  7. SULFASALAZINE. [Concomitant]
     Active Substance: SULFASALAZINE
     Indication: COLITIS
     Dosage: 2 TABLET
     Route: 048
     Dates: start: 2007, end: 2012

REACTIONS (8)
  - Diarrhoea haemorrhagic [Unknown]
  - Spondylitis [Unknown]
  - Polyp [Unknown]
  - Drug ineffective [Unknown]
  - Back pain [Unknown]
  - Wound [Unknown]
  - Colitis [Unknown]
  - Colitis [Unknown]

NARRATIVE: CASE EVENT DATE: 2012
